FAERS Safety Report 12511143 (Version 3)
Quarter: 2016Q3

REPORT INFORMATION
  Report Type: Spontaneous
  Country: US (occurrence: US)
  Receive Date: 20160629
  Receipt Date: 20160725
  Transmission Date: 20161109
  Serious: Yes (Other)
  Sender: FDA-Public Use
  Company Number: US-PFIZER INC-2016264408

PATIENT
  Age: 55 Year
  Sex: Female
  Weight: 73.48 kg

DRUGS (19)
  1. LYRICA [Suspect]
     Active Substance: PREGABALIN
     Dosage: 75 MG, 3X/DAY
     Route: 048
     Dates: start: 201606, end: 20160614
  2. ESCITALOPRAM [Concomitant]
     Active Substance: ESCITALOPRAM OXALATE
     Indication: ANTIDEPRESSANT THERAPY
     Dosage: 20 MG, 1X/DAY
  3. LOSARTAN POTASSIUM. [Concomitant]
     Active Substance: LOSARTAN POTASSIUM
     Indication: HYPERTENSION
     Dosage: 50 MG, 2X/DAY (HALF TABLET TWICE A DAY)
  4. VICTOZA [Concomitant]
     Active Substance: LIRAGLUTIDE
     Indication: BLOOD GLUCOSE INCREASED
     Dosage: 1.8 MG, 1X/DAY
  5. OMEGA 3 [Concomitant]
     Active Substance: OMEGA-3 FATTY ACIDS
     Indication: LIVER DISORDER
     Dosage: 540 MG, 1X/DAY
     Dates: start: 2016
  6. ATORVASTATIN [Concomitant]
     Active Substance: ATORVASTATIN
     Indication: BLOOD CHOLESTEROL INCREASED
     Dosage: 10 MG, 1X/DAY (ONCE A DAY AT BEDTIME)
  7. LEVEMIR [Concomitant]
     Active Substance: INSULIN DETEMIR
     Indication: BLOOD GLUCOSE INCREASED
     Dosage: 66 IU, 1X/DAY
  8. LYRICA [Suspect]
     Active Substance: PREGABALIN
     Indication: NEUROPATHY PERIPHERAL
     Dosage: 50 MG, 2X/DAY
     Dates: start: 2014
  9. LYRICA [Suspect]
     Active Substance: PREGABALIN
     Indication: RESTLESS LEGS SYNDROME
     Dosage: 50 MG, 3X/DAY
     Dates: start: 2014
  10. BUSPIRONE [Concomitant]
     Active Substance: BUSPIRONE HYDROCHLORIDE
     Indication: DEPRESSION
     Dosage: 7.5 MG, 2X/DAY
     Dates: start: 201604
  11. NOVALGIN [Concomitant]
     Active Substance: METAMIZOLE SODIUM
     Indication: BLOOD GLUCOSE INCREASED
     Dosage: 20 IU, UNK (WITH MEALS AND BEDTIME)
  12. CLONIDINE. [Concomitant]
     Active Substance: CLONIDINE
     Indication: HYPERTENSION
     Dosage: 0.3 MG, 4X/DAY (EVERY SIX HOURS)
  13. METFORMIN [Concomitant]
     Active Substance: METFORMIN HYDROCHLORIDE
     Indication: BLOOD GLUCOSE INCREASED
     Dosage: 1000 MG, 2X/DAY
  14. COENZYME Q10 [Concomitant]
     Active Substance: UBIDECARENONE
     Indication: CARDIAC DISORDER
     Dosage: 200 MG, 1X/DAY
     Dates: start: 201604
  15. CHLORTHALIDONE. [Concomitant]
     Active Substance: CHLORTHALIDONE
     Dosage: 25 MG, 1X/DAY
     Dates: start: 2014
  16. ROPINIROLE. [Concomitant]
     Active Substance: ROPINIROLE
     Indication: RESTLESS LEGS SYNDROME
     Dosage: 0.25 MG, 1X/DAY(ONE TABLET AT BEDTIME)
  17. CARVEDILOL. [Concomitant]
     Active Substance: CARVEDILOL
     Indication: HYPERTENSION
     Dosage: 25 MG, 2X/DAY
  18. NORCO [Concomitant]
     Active Substance: ACETAMINOPHEN\HYDROCODONE BITARTRATE
     Indication: PAIN
     Dosage: 7.5 MG, 3X/DAY (EVERY EIGHT HOURS)
  19. CHROMIUM PICOLINATE [Concomitant]
     Active Substance: CHROMIUM PICOLINATE
     Indication: SUPPLEMENTATION THERAPY
     Dosage: 1000 MG, 1X/DAY

REACTIONS (6)
  - Pain [Unknown]
  - Bursal fluid accumulation [Unknown]
  - Condition aggravated [Unknown]
  - Glycosylated haemoglobin increased [Unknown]
  - Pain in extremity [Not Recovered/Not Resolved]
  - Neuropathy peripheral [Unknown]

NARRATIVE: CASE EVENT DATE: 20160616
